FAERS Safety Report 5972499-0 (Version None)
Quarter: 2008Q4

REPORT INFORMATION
  Report Type: 
  Country: None (occurrence: None)
  Receive Date: 20081201
  Receipt Date: 20081124
  Transmission Date: 20090506
  Serious: Yes (Other)
  Sender: FDA-Public Use
  Company Number: A0758563A

PATIENT
  Sex: Male

DRUGS (4)
  1. AUGMENTIN '125' [Suspect]
     Indication: BRONCHITIS
     Dosage: 875MG TWICE PER DAY
     Route: 048
  2. CHERATUSSIN AC [Suspect]
     Indication: BRONCHITIS
     Dosage: 5ML AS REQUIRED
     Route: 048
  3. SPIRIVA [Concomitant]
  4. UNSPECIFIED MEDICATION [Concomitant]

REACTIONS (2)
  - DRUG INEFFECTIVE [None]
  - PNEUMONIA [None]
